FAERS Safety Report 18180791 (Version 1)
Quarter: 2020Q3

REPORT INFORMATION
  Report Type: Spontaneous
  Country: US (occurrence: US)
  Receive Date: 20200820
  Receipt Date: 20200820
  Transmission Date: 20201103
  Serious: Yes (Other)
  Sender: FDA-Public Use
  Company Number: None

PATIENT
  Age: 68 Year
  Sex: Female

DRUGS (1)
  1. MYCOPHENOLIC ACID 360MG DR TABLET [Suspect]
     Active Substance: MYCOPHENOLIC ACID
     Indication: RENAL TRANSPLANT
     Dosage: TREATMENT START DATE: 04?AUG?2020
     Route: 048
     Dates: start: 20200804, end: 20200814

REACTIONS (4)
  - Nausea [None]
  - Musculoskeletal stiffness [None]
  - Muscle tightness [None]
  - Hypoaesthesia [None]

NARRATIVE: CASE EVENT DATE: 20200408
